FAERS Safety Report 10005424 (Version 2)
Quarter: 2014Q1

REPORT INFORMATION
  Report Type: Spontaneous
  Country: FR (occurrence: FR)
  Receive Date: 20140313
  Receipt Date: 20140313
  Transmission Date: 20141002
  Serious: Yes (Life-Threatening, Hospitalization)
  Sender: FDA-Public Use
  Company Number: US-RANBAXY-2011US-48373

PATIENT
  Sex: Male

DRUGS (2)
  1. VERAPAMIL [Suspect]
     Indication: PRODUCT USED FOR UNKNOWN INDICATION
     Dosage: UNK
     Route: 048
  2. BISOPROLOL [Suspect]
     Indication: PRODUCT USED FOR UNKNOWN INDICATION
     Dosage: UNK
     Route: 048

REACTIONS (8)
  - Cardiogenic shock [Recovered/Resolved]
  - Intentional overdose [Unknown]
  - Multi-organ failure [Recovered/Resolved]
  - Metabolic acidosis [Recovering/Resolving]
  - Sinus bradycardia [Recovered/Resolved]
  - Hypotension [Recovering/Resolving]
  - Renal failure acute [Recovered/Resolved]
  - Electrocardiogram QT prolonged [Recovered/Resolved]
